FAERS Safety Report 5127823-8 (Version None)
Quarter: 2006Q4

REPORT INFORMATION
  Report Type: 
  Country: None (occurrence: None)
  Receive Date: 20061016
  Receipt Date: 20061002
  Transmission Date: 20070319
  Serious: Yes (Other)
  Sender: FDA-Public Use
  Company Number: SE-MERCK-0610SWE00003

PATIENT
  Age: 75 Year
  Sex: Male

DRUGS (1)
  1. COZAAR [Suspect]
     Indication: MYOCARDIAL ISCHAEMIA
     Route: 048
     Dates: start: 20021101

REACTIONS (1)
  - LYMPHOMA [None]
